FAERS Safety Report 15899554 (Version 1)
Quarter: 2019Q1

REPORT INFORMATION
  Report Type: Spontaneous
  Country: US (occurrence: US)
  Receive Date: 20190201
  Receipt Date: 20190201
  Transmission Date: 20190417
  Serious: Yes (Other)
  Sender: FDA-Public Use
  Company Number: US-ASTRAZENECA-2019SE15381

PATIENT
  Age: 73 Year
  Sex: Female
  Weight: 109.3 kg

DRUGS (3)
  1. TYLENOL EXTRA STRENGTH [Concomitant]
     Active Substance: ACETAMINOPHEN
     Indication: ARTHRITIS
     Dosage: UNK
  2. TYLENOL EXTRA STRENGTH [Concomitant]
     Active Substance: ACETAMINOPHEN
     Indication: HEADACHE
     Dosage: UNK
  3. ESOMEPRAZOLE MAGNESIUM. [Suspect]
     Active Substance: ESOMEPRAZOLE MAGNESIUM
     Indication: ULCER HAEMORRHAGE
     Dosage: 40 MG, 1X/DAY (BEFORE BREAKFAST)
     Route: 048

REACTIONS (6)
  - Drug effect incomplete [Unknown]
  - Gastric disorder [Unknown]
  - Atrial fibrillation [Unknown]
  - Vaginal neoplasm [Unknown]
  - Dyspepsia [Unknown]
  - Hypoacusis [Unknown]
